FAERS Safety Report 5917403-6 (Version None)
Quarter: 2008Q4

REPORT INFORMATION
  Report Type: 
  Country: None (occurrence: None)
  Receive Date: 20081014
  Receipt Date: 20081013
  Transmission Date: 20090506
  Serious: Yes (Hospitalization)
  Sender: FDA-Public Use
  Company Number: B0525045A

PATIENT
  Age: 56 Year
  Sex: Male

DRUGS (2)
  1. TRIZIVIR [Suspect]
     Indication: HIV INFECTION
     Dosage: 2G PER DAY
     Route: 048
     Dates: start: 20051212, end: 20080609
  2. GEMFIBROZIL [Concomitant]
     Route: 065

REACTIONS (1)
  - ANGINA PECTORIS [None]
